FAERS Safety Report 8991828 (Version 1)
Quarter: 2012Q4

REPORT INFORMATION
  Report Type: 
  Country: US (occurrence: US)
  Receive Date: 20121231
  Receipt Date: 20121231
  Transmission Date: 20130627
  Serious: Yes (Other)
  Sender: FDA-Public Use
  Company Number: CHPA2012US025624

PATIENT
  Sex: Female

DRUGS (2)
  1. PERDIEM [Suspect]
     Dosage: UNK, UNK
     Route: 048
  2. CARDIAC THERAPY [Concomitant]
     Indication: ARRHYTHMIA
     Dosage: UNK, UNK
     Route: 048

REACTIONS (1)
  - Arrhythmia [Not Recovered/Not Resolved]
